FAERS Safety Report 11631934 (Version 1)
Quarter: 2015Q4

REPORT INFORMATION
  Report Type: Spontaneous
  Country: US (occurrence: None)
  Receive Date: 20151001
  Receipt Date: 20151001
  Transmission Date: 20160304
  Serious: Yes (Hospitalization)
  Sender: FDA-Public Use
  Company Number: UCM201508-000571

PATIENT
  Sex: Female

DRUGS (1)
  1. HYDROCHLOROTHIAZIDE(HYDROCHLOROTHIAZIDE)(H-YDROCHLOROTHIAZIDE [Suspect]
     Active Substance: HYDROCHLOROTHIAZIDE
     Indication: HYPERTENSION
     Route: 048

REACTIONS (2)
  - Drug ineffective [None]
  - Hypertension [None]
